FAERS Safety Report 6549637-4 (Version None)
Quarter: 2010Q1

REPORT INFORMATION
  Report Type: 
  Country: None (occurrence: None)
  Receive Date: 20100119
  Receipt Date: 20100108
  Transmission Date: 20100710
  Serious: Yes (Other)
  Sender: FDA-Public Use
  Company Number: ERP10000001

PATIENT
  Age: 70 Year
  Sex: Male

DRUGS (1)
  1. ACTONEL [Suspect]
     Indication: OSTEOPOROSIS
     Dosage: 35 MG, 1/WEEK, ORAL
     Route: 048
     Dates: start: 20091208, end: 20091229

REACTIONS (3)
  - ACUTE HAEMORRHAGIC CONJUNCTIVITIS [None]
  - EYELID OEDEMA [None]
  - HEADACHE [None]
